APPROVED DRUG PRODUCT: ALPROSTADIL
Active Ingredient: ALPROSTADIL
Strength: 0.5MG/ML
Dosage Form/Route: INJECTABLE;INJECTION
Application: A074815 | Product #001 | TE Code: AP
Applicant: HIKMA PHARMACEUTICALS USA INC
Approved: Jan 20, 1998 | RLD: No | RS: No | Type: RX